FAERS Safety Report 25190567 (Version 2)
Quarter: 2025Q2

REPORT INFORMATION
  Report Type: Report from Study
  Country: CA (occurrence: CA)
  Receive Date: 20250411
  Receipt Date: 20250417
  Transmission Date: 20250717
  Serious: Yes (Other)
  Sender: ALEXION PHARMACEUTICALS
  Company Number: CA-AstraZeneca-CH-00845932A

PATIENT

DRUGS (3)
  1. DANICOPAN [Suspect]
     Active Substance: DANICOPAN
     Indication: Paroxysmal nocturnal haemoglobinuria
  2. DANICOPAN [Suspect]
     Active Substance: DANICOPAN
     Dosage: 200 MILLIGRAM, TID
  3. ULTOMIRIS [Suspect]
     Active Substance: RAVULIZUMAB-CWVZ
     Indication: Paroxysmal nocturnal haemoglobinuria

REACTIONS (3)
  - Malignant melanoma [Not Recovered/Not Resolved]
  - Nasopharyngitis [Not Recovered/Not Resolved]
  - Blood lactate dehydrogenase increased [Unknown]
